FAERS Safety Report 4910487-3 (Version None)
Quarter: 2006Q1

REPORT INFORMATION
  Report Type: 
  Country: None (occurrence: None)
  Receive Date: 20060209
  Receipt Date: 20060124
  Transmission Date: 20060701
  Serious: Yes (Other)
  Sender: FDA-Public Use
  Company Number: CA200512000913

PATIENT
  Age: 70 Year
  Sex: Male

DRUGS (9)
  1. HUMULIN N [Suspect]
     Indication: DIABETES MELLITUS
     Dosage: 42 U 2/D, SUBCUTANEOUS
     Route: 058
     Dates: start: 19940101
  2. HUMALOG [Suspect]
     Indication: DIABETES MELLITUS
  3. RABEPRAZOLE SODIUM [Concomitant]
  4. ZOPLICONE (ZOPLICONE) [Concomitant]
  5. FUROSEMIDE [Concomitant]
  6. ALLOPURINOL [Concomitant]
  7. RAMIPRIL [Concomitant]
  8. METOPROLOL (METOPROLOL) [Concomitant]
  9. ATORVASTATIN CALCIUM [Concomitant]

REACTIONS (5)
  - BLOOD GLUCOSE INCREASED [None]
  - DRUG INEFFECTIVE [None]
  - HEPATIC FAILURE [None]
  - LIVER TRANSPLANT [None]
  - PHARMACEUTICAL PRODUCT COMPLAINT [None]
